FAERS Safety Report 9349751 (Version 3)
Quarter: 2013Q4

REPORT INFORMATION
  Report Type: Report from Study
  Country: SK (occurrence: SK)
  Receive Date: 20130614
  Receipt Date: 20131218
  Transmission Date: 20140711
  Serious: Yes (Hospitalization, Disabling)
  Sender: FDA-Public Use
  Company Number: SK-ROCHE-1236885

PATIENT
  Age: 79 Year
  Sex: Female
  Weight: 49.03 kg

DRUGS (5)
  1. RANIBIZUMAB [Suspect]
     Indication: MACULAR OEDEMA
     Dosage: LAST DOSE OF DRUG BEFORE SAE ON 23/APR/2013.
     Route: 050
     Dates: start: 20121218, end: 20121218
  2. RANIBIZUMAB [Suspect]
     Indication: RETINAL VEIN OCCLUSION
     Route: 050
     Dates: start: 20130423, end: 20130423
  3. NITRENDIPINE [Suspect]
     Indication: HYPERTENSION
     Route: 065
     Dates: start: 20120113
  4. ASCORBIC ACID [Suspect]
     Indication: PRODUCT USED FOR UNKNOWN INDICATION
     Route: 065
     Dates: start: 20130113
  5. TELMISARTAN [Concomitant]
     Indication: HYPERTENSION
     Route: 065
     Dates: start: 20130113

REACTIONS (1)
  - Ischaemic stroke [Recovering/Resolving]
